FAERS Safety Report 13284680 (Version 2)
Quarter: 2017Q2

REPORT INFORMATION
  Report Type: Spontaneous
  Country: US (occurrence: US)
  Receive Date: 20170301
  Receipt Date: 20170414
  Transmission Date: 20170830
  Serious: Yes (Other)
  Sender: FDA-Public Use
  Company Number: US-009507513-1702USA008090

PATIENT
  Age: 19 Year
  Sex: Female
  Weight: 45.81 kg

DRUGS (1)
  1. NEXPLANON [Suspect]
     Active Substance: ETONOGESTREL
     Indication: CONTRACEPTION
     Dosage: 68MG X 1, 1 ROD/3 YEARS, LEFT ARM
     Route: 058
     Dates: start: 20141105, end: 20161219

REACTIONS (10)
  - Muscle rupture [Unknown]
  - Device deployment issue [Recovered/Resolved]
  - Paraesthesia [Recovered/Resolved]
  - Incorrect route of drug administration [Unknown]
  - Implant site pain [Recovered/Resolved]
  - Complication associated with device [Recovered/Resolved]
  - Muscle strain [Unknown]
  - Complication of device removal [Recovered/Resolved]
  - Hypoaesthesia [Recovered/Resolved]
  - Migration of implanted drug [Recovered/Resolved]

NARRATIVE: CASE EVENT DATE: 20141105
